FAERS Safety Report 19165303 (Version 1)
Quarter: 2021Q2

REPORT INFORMATION
  Report Type: Report from Study
  Country: KR (occurrence: KR)
  Receive Date: 20210421
  Receipt Date: 20210421
  Transmission Date: 20210717
  Serious: Yes (Hospitalization)
  Sender: FDA-Public Use
  Company Number: KR-EISAI MEDICAL RESEARCH-EC-2021-091343

PATIENT
  Age: 53 Year
  Sex: Male
  Weight: 64 kg

DRUGS (13)
  1. LEVOSARTAN [Concomitant]
     Indication: HYPERTENSION
     Dosage: 2.5/160 MG
     Route: 048
  2. CELEBREX [Concomitant]
     Active Substance: CELECOXIB
     Indication: MUSCULOSKELETAL STIFFNESS
     Route: 048
     Dates: start: 20201209
  3. SYNTHYROCIN [Concomitant]
     Indication: HYPOTHYROIDISM
     Dosage: 1 TAB
     Route: 048
     Dates: start: 20210216
  4. BARACLE [Concomitant]
     Indication: CHRONIC HEPATITIS B
     Dosage: 1 TAB
     Route: 048
     Dates: start: 20200309
  5. LENVIMA [Suspect]
     Active Substance: LENVATINIB
     Indication: HEPATOCELLULAR CARCINOMA
     Route: 048
     Dates: start: 20201007, end: 20210329
  6. GLIBETA?M [Concomitant]
     Indication: DIABETES MELLITUS
     Dosage: 2 TABS
     Route: 048
  7. CNU [Concomitant]
     Indication: PROPHYLAXIS
  8. NEBILET [Concomitant]
     Active Substance: NEBIVOLOL
     Indication: HYPERTENSION
     Dosage: 0.5 TAB
     Route: 048
  9. STOGAR [Concomitant]
     Active Substance: LAFUTIDINE
     Indication: PROPHYLAXIS
     Route: 048
     Dates: start: 20210304
  10. TRAJENTA [Concomitant]
     Active Substance: LINAGLIPTIN
     Indication: DIABETES MELLITUS
     Dosage: 1 TAB
     Route: 048
  11. MYONAL [Concomitant]
     Indication: MUSCULOSKELETAL STIFFNESS
     Route: 048
     Dates: start: 20210304
  12. CILOSTAN CR [Concomitant]
     Indication: HYPERTENSION
     Route: 048
  13. MUCOSTA [Concomitant]
     Active Substance: REBAMIPIDE
     Indication: PROPHYLAXIS
     Route: 048
     Dates: start: 20210304

REACTIONS (1)
  - Muscular weakness [Recovered/Resolved]

NARRATIVE: CASE EVENT DATE: 20210401
